FAERS Safety Report 5022731-5 (Version None)
Quarter: 2006Q2

REPORT INFORMATION
  Report Type: 
  Country: None (occurrence: None)
  Receive Date: 20060609
  Receipt Date: 20060601
  Transmission Date: 20061013
  Serious: Yes (Death, Hospitalization)
  Sender: FDA-Public Use
  Company Number: VE-ABBOTT-06P-178-0335177-00

PATIENT
  Age: 56 Year
  Sex: Male
  Weight: 64 kg

DRUGS (2)
  1. HUMIRA [Suspect]
     Indication: ARTHRITIS
     Route: 058
     Dates: start: 20050701, end: 20051101
  2. HUMIRA [Suspect]
     Route: 058
     Dates: start: 20051201, end: 20051212

REACTIONS (4)
  - COUGH [None]
  - INFLUENZA [None]
  - METASTASES TO LIVER [None]
  - PANCREATIC CARCINOMA [None]
